FAERS Safety Report 9175569 (Version 2)
Quarter: 2013Q4

REPORT INFORMATION
  Report Type: Spontaneous
  Country: US (occurrence: US)
  Receive Date: 20120915
  Receipt Date: 20131101
  Transmission Date: 20140711
  Serious: No
  Sender: FDA-Public Use
  Company Number: US-009507513-1208USA001194

PATIENT
  Sex: Female

DRUGS (1)
  1. INTRONA [Suspect]
     Dosage: 18 MIU 1 STANDARD DOSE VIAL OF 1

REACTIONS (3)
  - Underdose [Unknown]
  - Product reconstitution issue [Unknown]
  - No adverse event [Unknown]
